FAERS Safety Report 4386565-7 (Version None)
Quarter: 2004Q2

REPORT INFORMATION
  Report Type: 
  Country: None (occurrence: None)
  Receive Date: 20040623
  Receipt Date: 20031008
  Transmission Date: 20050107
  Serious: Yes (Hospitalization)
  Sender: FDA-Public Use
  Company Number: 2004218807JP

PATIENT
  Age: 3 Year
  Sex: Female

DRUGS (6)
  1. CYTOSAR-U [Suspect]
     Indication: ACUTE LYMPHOCYTIC LEUKAEMIA
     Dosage: 2400 MG, QD, IV DRIP
     Route: 041
     Dates: start: 19991220, end: 19991224
  2. METHOTREXATE [Suspect]
     Indication: ACUTE LYMPHOCYTIC LEUKAEMIA
     Dosage: 12.5 MG, QD
     Dates: start: 19991220, end: 19991220
  3. SOLU-CORTEF [Suspect]
     Indication: ACUTE LYMPHOCYTIC LEUKAEMIA
     Dosage: 25 MG, QD
     Dates: start: 19991220, end: 19991220
  4. L-ASPARAGINASE (ASPARAGINASE) [Suspect]
     Indication: ACUTE LYMPHOCYTIC LEUKAEMIA
     Dosage: 6000 U, QD, IV DRIP
     Route: 041
     Dates: start: 19991224, end: 19991224
  5. GRANISETRON HYDROCHLORIDE [Suspect]
  6. METHYLPREDNISOLONE [Concomitant]

REACTIONS (2)
  - PANCYTOPENIA [None]
  - STREPTOCOCCAL SEPSIS [None]
